FAERS Safety Report 24735217 (Version 3)
Quarter: 2025Q1

REPORT INFORMATION
  Report Type: Report from Study
  Country: HN (occurrence: HN)
  Receive Date: 20241215
  Receipt Date: 20250116
  Transmission Date: 20250409
  Serious: Yes (Death, Other)
  Sender: AMGEN
  Company Number: HN-SERVIER-S24014908

PATIENT
  Age: 60 Year
  Sex: Female
  Weight: 69 kg

DRUGS (6)
  1. IVABRADINE [Suspect]
     Active Substance: IVABRADINE
     Indication: Angina pectoris
     Dosage: 5 MG, BID 2 TABLETS
     Route: 048
     Dates: start: 202409
  2. CARVEDILOL\IVABRADINE [Suspect]
     Active Substance: CARVEDILOL\IVABRADINE
     Indication: Heart valve stenosis
     Dosage: CARIVALAN 6.25/5MG
     Route: 048
     Dates: start: 2023, end: 202409
  3. LASIX [Concomitant]
     Active Substance: FUROSEMIDE
     Indication: Fluid retention
     Dosage: 2 DF, QD
     Route: 048
     Dates: start: 2022
  4. LIPOSINOL [Concomitant]
     Indication: Blood cholesterol
     Route: 048
     Dates: start: 2023
  5. LEVOTHYROXINE SODIUM [Concomitant]
     Active Substance: LEVOTHYROXINE SODIUM
     Indication: Thyroid disorder
     Route: 048
     Dates: start: 2022
  6. INSPRA [Concomitant]
     Active Substance: EPLERENONE
     Indication: Cardiac failure
     Route: 048
     Dates: start: 202408

REACTIONS (11)
  - Chest pain [Fatal]
  - Thyroid disorder [Fatal]
  - Heart rate decreased [Fatal]
  - Gait inability [Fatal]
  - Fatigue [Fatal]
  - Insomnia [Fatal]
  - Fluid retention [Fatal]
  - Ulcer [Fatal]
  - Dehydration [Fatal]
  - Suffocation feeling [Fatal]
  - Death [Fatal]

NARRATIVE: CASE EVENT DATE: 20240501
